FAERS Safety Report 22157153 (Version 2)
Quarter: 2023Q2

REPORT INFORMATION
  Report Type: Spontaneous
  Country: US (occurrence: US)
  Receive Date: 20230330
  Receipt Date: 20230420
  Transmission Date: 20230721
  Serious: Yes (Hospitalization)
  Sender: FDA-Public Use
  Company Number: US-BAYER-2023P010069

PATIENT
  Age: 15 Year
  Sex: Male

DRUGS (2)
  1. KOVALTRY [Suspect]
     Active Substance: ANTIHEMOPHILIC FACTOR, HUMAN RECOMBINANT
     Dosage: 2500 U, UNK
     Route: 042
  2. KOVALTRY [Suspect]
     Active Substance: ANTIHEMOPHILIC FACTOR, HUMAN RECOMBINANT
     Dosage: 3500 U, BID (TO TREAT THE SHOULDER BLEED)
     Route: 042
     Dates: start: 20230206

REACTIONS (2)
  - Lyme disease [None]
  - Haemarthrosis [None]

NARRATIVE: CASE EVENT DATE: 20230206
